FAERS Safety Report 22537076 (Version 3)
Quarter: 2024Q1

REPORT INFORMATION
  Report Type: Report from Study
  Country: US (occurrence: US)
  Receive Date: 20230608
  Receipt Date: 20240126
  Transmission Date: 20240410
  Serious: Yes (Other)
  Sender: FDA-Public Use
  Company Number: US-UCBSA-2023007849

PATIENT
  Age: 62 Year
  Sex: Female
  Weight: 51.71 kg

DRUGS (22)
  1. CERTOLIZUMAB PEGOL [Suspect]
     Active Substance: CERTOLIZUMAB PEGOL
     Indication: Rheumatoid arthritis
     Dosage: 400 MILLIGRAM, EV 2 WEEKS(QOW)
     Route: 058
  2. CERTOLIZUMAB PEGOL [Suspect]
     Active Substance: CERTOLIZUMAB PEGOL
     Dosage: 400 MILLIGRAM, EV 4 WEEKS
     Route: 058
     Dates: start: 20220901
  3. CERTOLIZUMAB PEGOL [Suspect]
     Active Substance: CERTOLIZUMAB PEGOL
     Dosage: 400 MILLIGRAM, EV 4 WEEKS
     Route: 058
     Dates: start: 20231221
  4. EVENITY [Suspect]
     Active Substance: ROMOSOZUMAB-AQQG
     Indication: Product used for unknown indication
     Dosage: 210 MILLIGRAM, MONTHLY (QM) / 210 MG/234 ML (105 MG/1.17 ML X 2)
     Route: 058
     Dates: start: 20230816
  5. FIORICET [Concomitant]
     Active Substance: ACETAMINOPHEN\BUTALBITAL\CAFFEINE
     Indication: Product used for unknown indication
     Dosage: 50 MG-300 MG-40 MG / 1-2 CAPSULES EVERY 4 HOURS AS NEEDED AND NOT EXCEEDING 6 CAPSULES PER 24HRS
  6. ISOSORBIDE MONONITRATE [Concomitant]
     Active Substance: ISOSORBIDE MONONITRATE
     Indication: Product used for unknown indication
     Dosage: (30MG) 0.5 TAB QHS / EXTENDED RELEASE 24 HRS
     Route: 048
  7. LEVOTHYROXINE [Concomitant]
     Active Substance: LEVOTHYROXINE\LEVOTHYROXINE SODIUM
     Indication: Product used for unknown indication
     Dosage: 112 MICROGRAM PER DAY
     Route: 048
  8. FLUCONAZOLE [Concomitant]
     Active Substance: FLUCONAZOLE
     Indication: Product used for unknown indication
     Dosage: 100 MILLIGRAM, ONCE DAILY (QD)
     Route: 048
     Dates: start: 20190709
  9. NITROSTAT [Concomitant]
     Active Substance: NITROGLYCERIN
     Indication: Pain
     Dosage: 0.4 MILLIGRAM (ROUTE AT THE 1ST SIGN OF ATTACK; RNAY REPEAT EVERY 5MIN UNTIL RELIEF; IF PAIN PERSIST
     Route: 060
  10. CARAFATE [Concomitant]
     Active Substance: SUCRALFATE
     Indication: Product used for unknown indication
     Dosage: 1 GRAM, 4X/DAY (QID) ON AN EMPTY STOMACH 1 HOUR BEFORE MEALS AND AT BEDTIRNE
     Route: 048
  11. PRILOSEC [Concomitant]
     Active Substance: OMEPRAZOLE MAGNESIUM
     Indication: Product used for unknown indication
     Dosage: 20 MILLIGRAM, 2X/DAY (BID)
     Route: 048
  12. VITAMIN D3 [Concomitant]
     Active Substance: CHOLECALCIFEROL
     Indication: Product used for unknown indication
     Dosage: 2000 UNIT (1 TABLET EVERY DAY)
     Route: 048
  13. ZOFRAN [Concomitant]
     Active Substance: ONDANSETRON HYDROCHLORIDE
     Indication: Product used for unknown indication
     Dosage: 8 MILLIGRAM, 3X/DAY (TID) / TAKE 1 TABLET BY ORAL ROUTE EVERY 8 HOURS FOR 2 DAYS
     Route: 048
  14. FOLIC ACID [Concomitant]
     Active Substance: FOLIC ACID
     Indication: Product used for unknown indication
     Dosage: 2 MILLIGRAM EVERY DAY / TAKE 2 TABLETS BY MOUTH EVERY DAY
     Route: 048
     Dates: start: 20210127
  15. MESALAMINE [Concomitant]
     Active Substance: MESALAMINE
     Indication: Product used for unknown indication
     Dosage: POWDER, 4 CAPSULES DAILY
     Dates: start: 20210128
  16. HYDROCHLOROTHIAZIDE [Concomitant]
     Active Substance: HYDROCHLOROTHIAZIDE
     Indication: Product used for unknown indication
     Dosage: 25 MILLIGRAM EVERY DAY AS NEEDED
     Route: 048
     Dates: start: 20210128
  17. PLAVIX [Concomitant]
     Active Substance: CLOPIDOGREL BISULFATE
     Indication: Product used for unknown indication
     Dosage: 75 MILLIGRAM, ONCE DAILY (QD)
     Route: 048
  18. LYRICA [Concomitant]
     Active Substance: PREGABALIN
     Indication: Product used for unknown indication
     Dosage: 75 MILLIGRAM, 2X/DAY (BID) / TAKE 1 CAPSULE BY ORAL ROUTE 2 TIMES EVERYDAY
     Route: 048
  19. DILTIAZEM HYDROCHLORIDE [Concomitant]
     Active Substance: DILTIAZEM HYDROCHLORIDE
     Indication: Product used for unknown indication
     Dosage: 125 MG/125 ML (1 MG/ML) IN 0.9% SODIUM CHLORIDE IV FOR UPTO 24 HRS/ INFUSE (5 MG/H) UP TO 24 HRS
     Route: 042
  20. METOPROLOL TARTRATE [Concomitant]
     Active Substance: METOPROLOL TARTRATE
     Indication: Product used for unknown indication
     Dosage: 25 MILLIGRAM, 2X/DAY (BID) / TAKE1 TABLET BY ORAL ROUTE 2 TIMES EVERY DAY
     Route: 048
  21. VITAMIN D2 [Concomitant]
     Active Substance: ERGOCALCIFEROL
     Indication: Product used for unknown indication
     Dosage: 50,000 IU EVERY WEEK
     Route: 048
     Dates: start: 20231206
  22. PROLIA [Concomitant]
     Active Substance: DENOSUMAB
     Indication: Pathological fracture

REACTIONS (30)
  - Rheumatoid arthritis [Recovering/Resolving]
  - Cellulitis [Recovered/Resolved]
  - Renal impairment [Unknown]
  - Haematochezia [Unknown]
  - Sjogren^s syndrome [Unknown]
  - Sleep disorder [Not Recovered/Not Resolved]
  - Urinary tract infection [Not Recovered/Not Resolved]
  - Viral infection [Recovered/Resolved]
  - Renal disorder [Unknown]
  - Iron deficiency anaemia [Unknown]
  - Illness [Recovered/Resolved]
  - Pyrexia [Unknown]
  - Infection [Unknown]
  - Eye symptom [Unknown]
  - Visual impairment [Unknown]
  - Stomatitis [Unknown]
  - Skin lesion [Unknown]
  - Chest pain [Unknown]
  - Cough [Unknown]
  - Exercise tolerance decreased [Unknown]
  - Blood pressure abnormal [Unknown]
  - Jaundice [Unknown]
  - Urinary tract disorder [Unknown]
  - Blood glucose abnormal [Unknown]
  - Weight decreased [Unknown]
  - Gastrointestinal disorder [Unknown]
  - Osteoporosis [Unknown]
  - Nausea [Unknown]
  - Product dose omission issue [Unknown]
  - Insurance issue [Unknown]

NARRATIVE: CASE EVENT DATE: 20221101
